FAERS Safety Report 7811496-7 (Version None)
Quarter: 2011Q4

REPORT INFORMATION
  Report Type: 
  Country: None (occurrence: None)
  Receive Date: 20111013
  Receipt Date: 20111013
  Transmission Date: 20120403
  Serious: Yes (Other)
  Sender: FDA-Public Use
  Company Number: None

PATIENT
  Age: 39 Year
  Sex: Female
  Weight: 72.574 kg

DRUGS (7)
  1. MS CONTIN [Concomitant]
  2. DILAUDID [Concomitant]
  3. TOPIRAMATE [Suspect]
     Indication: MIGRAINE
     Dosage: 25 MG
     Route: 048
  4. IMITREX [Concomitant]
  5. NEURONTIN [Concomitant]
  6. NORTRIPTYLINE HCL [Concomitant]
  7. INDERAL [Concomitant]

REACTIONS (8)
  - SOCIAL PROBLEM [None]
  - BODY TEMPERATURE INCREASED [None]
  - PARANOIA [None]
  - DIZZINESS [None]
  - MENTAL DISORDER [None]
  - AGGRESSION [None]
  - HYPOHIDROSIS [None]
  - DEPRESSION [None]
